FAERS Safety Report 4985792-5 (Version None)
Quarter: 2006Q2

REPORT INFORMATION
  Report Type: 
  Country: None (occurrence: None)
  Receive Date: 20060428
  Receipt Date: 20050429
  Transmission Date: 20061013
  Serious: Yes (Other)
  Sender: FDA-Public Use
  Company Number: GB-BRISTOL-MYERS SQUIBB COMPANY-12952446

PATIENT
  Sex: Male
  Weight: 2 kg

DRUGS (8)
  1. REYATAZ [Suspect]
     Indication: HIV INFECTION
     Route: 064
  2. RITONAVIR [Concomitant]
     Indication: HIV INFECTION
     Dosage: ONGOING AT CONCEPTION.
     Route: 064
  3. VIREAD [Concomitant]
     Indication: HIV INFECTION
     Route: 064
  4. EMTRIVA [Concomitant]
     Indication: HIV INFECTION
     Route: 064
  5. PROTHIADEN [Concomitant]
     Indication: HIV INFECTION
     Dosage: 75 MG TWICE DAILY FROM MAR-2005.
     Route: 064
  6. PROTHIADEN [Concomitant]
     Indication: DEPRESSION
     Dosage: 75 MG TWICE DAILY FROM MAR-2005.
     Route: 064
  7. ACYCLOVIR [Concomitant]
     Route: 064
  8. TRUVADA [Concomitant]
     Indication: HIV INFECTION
     Route: 064

REACTIONS (2)
  - PERICARDIAL EFFUSION [None]
  - PLEURAL EFFUSION [None]
